FAERS Safety Report 6882652-X (Version None)
Quarter: 2010Q3

REPORT INFORMATION
  Report Type: 
  Country: None (occurrence: None)
  Receive Date: 20100729
  Receipt Date: 20100716
  Transmission Date: 20110219
  Serious: Yes (Other)
  Sender: FDA-Public Use
  Company Number: JP-ROCHE-713222

PATIENT
  Age: 50 Year
  Sex: Female

DRUGS (3)
  1. XELODA [Suspect]
     Indication: BREAST CANCER METASTATIC
     Dosage: DRUG: XELODA 300, DOSAGE IS UNCERTAIN.
     Route: 048
  2. XELODA [Suspect]
     Dosage: NOTE: DOSAGE IS UNCERTAIN.
     Route: 048
     Dates: start: 20091001
  3. TYKERB [Concomitant]
     Dosage: DOSAGE IS UNCERTAIN.
     Route: 048
     Dates: start: 20091001

REACTIONS (3)
  - BRAIN OEDEMA [None]
  - DIARRHOEA [None]
  - VOMITING [None]
